FAERS Safety Report 8554312-0 (Version None)
Quarter: 2012Q3

REPORT INFORMATION
  Report Type: 
  Country: None (occurrence: None)
  Receive Date: 20120731
  Receipt Date: 20120724
  Transmission Date: 20120928
  Serious: Yes (Hospitalization)
  Sender: FDA-Public Use
  Company Number: GB-ROCHE-1084144

PATIENT
  Sex: Female

DRUGS (9)
  1. HYDROXYCHLOROQUINE SULFATE [Concomitant]
     Indication: RHEUMATOID ARTHRITIS
     Dosage: LONG TERM THERAPY
  2. ASPIRIN [Concomitant]
     Dosage: LONG TERM THERAPY
     Route: 048
  3. LEVOTHYROXINE SODIUM [Concomitant]
     Dosage: LONG TERM THERAPY
     Route: 048
  4. TOCILIZUMAB [Suspect]
     Dosage: INFUSION 2
     Route: 042
  5. SIMVASTATIN [Concomitant]
     Dosage: LONG TERM THERAPY
     Route: 048
  6. METHOTREXATE [Concomitant]
     Indication: RHEUMATOID ARTHRITIS
     Dosage: LONG TERM THERAPY
  7. TOCILIZUMAB [Suspect]
     Dosage: INFUSION 3
     Route: 042
  8. TOCILIZUMAB [Suspect]
     Dosage: INFUSION 4
     Route: 042
     Dates: end: 20120624
  9. TOCILIZUMAB [Suspect]
     Indication: RHEUMATOID ARTHRITIS
     Dosage: INFUSION 1
     Route: 042
     Dates: start: 20120216

REACTIONS (3)
  - VASCULITIS [None]
  - CELLULITIS [None]
  - SKIN NECROSIS [None]
